FAERS Safety Report 8576721-6 (Version None)
Quarter: 2012Q3

REPORT INFORMATION
  Report Type: 
  Country: None (occurrence: None)
  Receive Date: 20120807
  Receipt Date: 20120801
  Transmission Date: 20120928
  Serious: Yes (Other)
  Sender: FDA-Public Use
  Company Number: FR-GLAXOSMITHKLINE-B0819648A

PATIENT
  Sex: Male

DRUGS (3)
  1. STALEVO 100 [Suspect]
     Indication: PARKINSON'S DISEASE
     Dosage: 150MG SIX TIMES PER DAY
     Route: 048
     Dates: start: 20060101
  2. REQUIP [Suspect]
     Indication: PARKINSON'S DISEASE
     Route: 048
  3. MODOPAR [Suspect]
     Indication: PARKINSON'S DISEASE
     Dosage: 62.5MG SIX TIMES PER DAY
     Route: 048
     Dates: start: 20060101

REACTIONS (3)
  - PATHOLOGICAL GAMBLING [None]
  - STEREOTYPY [None]
  - IMPULSE-CONTROL DISORDER [None]
